FAERS Safety Report 19646685 (Version 1)
Quarter: 2021Q3

REPORT INFORMATION
  Report Type: Spontaneous
  Country: US (occurrence: US)
  Receive Date: 20210802
  Receipt Date: 20210802
  Transmission Date: 20211014
  Serious: No
  Sender: FDA-Public Use
  Company Number: US-BAYER-2021-185763

PATIENT
  Age: 72 Year
  Sex: Male

DRUGS (1)
  1. ALEVE [Suspect]
     Active Substance: NAPROXEN SODIUM
     Route: 048
     Dates: start: 20210729

REACTIONS (2)
  - Drug ineffective [None]
  - Expired product administered [Unknown]

NARRATIVE: CASE EVENT DATE: 20210729
